FAERS Safety Report 9507262 (Version 2)
Quarter: 2014Q1

REPORT INFORMATION
  Report Type: Spontaneous
  Country: US (occurrence: None)
  Receive Date: 20130305
  Receipt Date: 20140306
  Transmission Date: 20141002
  Serious: Yes (Other)
  Sender: FDA-Public Use
  Company Number: 163-21880-12113309

PATIENT
  Age: 78 Year
  Sex: Male

DRUGS (15)
  1. REVLIMID [Suspect]
     Indication: PLASMA CELL MYELOMA
     Dosage: 15 MG, 21 IN 28 D, PO
     Route: 048
     Dates: start: 20121006
  2. ASPIRIN (ACETYLSALICYLIC ACID) [Concomitant]
  3. VITAMINS [Concomitant]
  4. DEXAMETHASONE (DEXAMETHASONE) [Concomitant]
  5. FUROSEMIDE (FUROSEMIDE) [Concomitant]
  6. ZOMETA (ZOLEDRONIC ACID) [Concomitant]
  7. ACYCLOVIR (ACICLOVIR) [Concomitant]
  8. TEMAZEPAM (TEMAZEPAM) [Concomitant]
  9. POTASSIUM CITRATE (POTASSIUM CITRATE) [Concomitant]
  10. IMODIUM (LOPERAMIDE) [Concomitant]
  11. CALCIUM CITRATE (CALCIUM CITRATE) [Concomitant]
  12. ANTI-GAS ULTRA (DIMETICONE, ACTIVATED) [Concomitant]
  13. TYLENOL (PARACETAMOL) [Concomitant]
  14. PROCRIT [Concomitant]
  15. VELCADE (BORTEZOMIB) [Concomitant]

REACTIONS (4)
  - Flatulence [None]
  - Constipation [None]
  - Hypotension [None]
  - Diarrhoea [None]
